FAERS Safety Report 10009710 (Version 2)
Quarter: 2014Q1

REPORT INFORMATION
  Report Type: Spontaneous
  Country: US (occurrence: US)
  Receive Date: 20140312
  Receipt Date: 20140312
  Transmission Date: 20141002
  Serious: No
  Sender: FDA-Public Use
  Company Number: US-INCYTE CORPORATION-2012IN002266

PATIENT
  Age: 81 Year
  Sex: Female
  Weight: 55.78 kg

DRUGS (5)
  1. JAKAFI [Suspect]
     Indication: POLYCYTHAEMIA VERA
     Dosage: 20 MG, BID
     Route: 048
     Dates: start: 20120531, end: 20120813
  2. JAKAFI [Suspect]
     Dosage: 10 MG, QD
     Route: 048
     Dates: start: 20120814
  3. LEVOTHYROXINE [Concomitant]
     Dosage: 25 MCG, UNK
  4. WARFARIN [Concomitant]
  5. ONE-A-DAY WOMENS [Concomitant]

REACTIONS (3)
  - Muscle spasms [Recovered/Resolved]
  - Skin discolouration [Recovered/Resolved]
  - Blood count abnormal [Unknown]
